FAERS Safety Report 12187273 (Version 1)
Quarter: 2016Q1

REPORT INFORMATION
  Report Type: Spontaneous
  Country: US (occurrence: US)
  Receive Date: 20160317
  Receipt Date: 20160317
  Transmission Date: 20160526
  Serious: Yes (Other)
  Sender: FDA-Public Use
  Company Number: US-TEVA-642822USA

PATIENT
  Age: 51 Year
  Sex: Female

DRUGS (1)
  1. ZECUITY [Suspect]
     Active Substance: SUMATRIPTAN SUCCINATE
     Route: 062
     Dates: start: 201602, end: 201602

REACTIONS (6)
  - Drug ineffective [Unknown]
  - Application site pain [Unknown]
  - Application site reaction [Unknown]
  - Application site erythema [Unknown]
  - Application site burn [Unknown]
  - Skin abrasion [Unknown]

NARRATIVE: CASE EVENT DATE: 201602
